FAERS Safety Report 17402303 (Version 1)
Quarter: 2020Q1

REPORT INFORMATION
  Report Type: Spontaneous
  Country: US (occurrence: US)
  Receive Date: 20200211
  Receipt Date: 20200211
  Transmission Date: 20200409
  Serious: No
  Sender: FDA-Public Use
  Company Number: US-SA-2020SA033887

PATIENT
  Age: 82 Year
  Sex: Male

DRUGS (1)
  1. LANTUS [Suspect]
     Active Substance: INSULIN GLARGINE
     Indication: TYPE 2 DIABETES MELLITUS
     Dosage: 55 IU, QD,AT NIGHT
     Route: 065
     Dates: start: 2005

REACTIONS (4)
  - Therapeutic response decreased [Unknown]
  - Extra dose administered [Unknown]
  - Blood glucose increased [Unknown]
  - Malaise [Unknown]
